FAERS Safety Report 20641918 (Version 1)
Quarter: 2022Q1

REPORT INFORMATION
  Report Type: Report from Study
  Country: EG (occurrence: EG)
  Receive Date: 20220328
  Receipt Date: 20220328
  Transmission Date: 20220423
  Serious: Yes (Hospitalization, Other)
  Sender: FDA-Public Use
  Company Number: EG-NOVARTISPH-NVSC2022EG068106

PATIENT
  Sex: Male

DRUGS (4)
  1. GILENYA [Suspect]
     Active Substance: FINGOLIMOD HYDROCHLORIDE
     Indication: Multiple sclerosis
     Dosage: 0.5 MG, QD
     Route: 048
     Dates: start: 201305, end: 202104
  2. LYRICA [Concomitant]
     Active Substance: PREGABALIN
     Indication: Analgesic therapy
     Dosage: UNK, BID
     Route: 065
     Dates: start: 2010
  3. LYRICA [Concomitant]
     Active Substance: PREGABALIN
     Indication: Hypoaesthesia
  4. AMBER [Concomitant]
     Active Substance: AMBER
     Indication: Balance disorder
     Dosage: UNK, BID
     Route: 065
     Dates: start: 2012

REACTIONS (8)
  - Multiple sclerosis [Recovering/Resolving]
  - Urinary incontinence [Recovering/Resolving]
  - Movement disorder [Recovering/Resolving]
  - Balance disorder [Recovering/Resolving]
  - Paraesthesia [Recovering/Resolving]
  - Hypoaesthesia [Recovering/Resolving]
  - Central nervous system lesion [Not Recovered/Not Resolved]
  - Immune system disorder [Unknown]

NARRATIVE: CASE EVENT DATE: 20130101
